FAERS Safety Report 13010116 (Version 1)
Quarter: 2016Q4

REPORT INFORMATION
  Report Type: Spontaneous
  Country: US (occurrence: US)
  Receive Date: 20161208
  Receipt Date: 20161208
  Transmission Date: 20170207
  Serious: No
  Sender: FDA-Public Use
  Company Number: US-BAYER-2016-228442

PATIENT
  Age: 13 Year
  Sex: Female

DRUGS (3)
  1. MIDOL EXTENDED RELIEF [Suspect]
     Active Substance: NAPROXEN SODIUM
     Indication: PAIN
     Dosage: 1 DF, BID
     Route: 048
     Dates: start: 20161129, end: 20161129
  2. MIDOL EXTENDED RELIEF [Suspect]
     Active Substance: NAPROXEN SODIUM
     Indication: DYSMENORRHOEA
  3. MIDOL EXTENDED RELIEF [Suspect]
     Active Substance: NAPROXEN SODIUM
     Indication: PREMENSTRUAL SYNDROME

REACTIONS (3)
  - Pyrexia [Not Recovered/Not Resolved]
  - Vomiting [Unknown]
  - Erythema [Unknown]

NARRATIVE: CASE EVENT DATE: 201611
